FAERS Safety Report 17351463 (Version 1)
Quarter: 2020Q1

REPORT INFORMATION
  Report Type: Report from Study
  Country: KR (occurrence: KR)
  Receive Date: 20200130
  Receipt Date: 20200130
  Transmission Date: 20200409
  Serious: Yes (Other)
  Sender: FDA-Public Use
  Company Number: KR-JNJFOC-20200140444

PATIENT

DRUGS (4)
  1. REMICADE [Suspect]
     Active Substance: INFLIXIMAB
     Indication: CROHN^S DISEASE
     Dosage: USUALLY AT 0, 2, AND 6 WEEKS. SUBSEQUENTLY, MAINTENANCE THERAPY AT 8-WEEK INTERVALS
     Route: 042
  2. AZATHIOPRINE. [Concomitant]
     Active Substance: AZATHIOPRINE
  3. 6-MP [Concomitant]
     Active Substance: MERCAPTOPURINE
  4. METHOTREXATE. [Concomitant]
     Active Substance: METHOTREXATE

REACTIONS (4)
  - Therapy non-responder [Unknown]
  - Infection [Unknown]
  - Neoplasm malignant [Unknown]
  - Adverse drug reaction [Unknown]
